FAERS Safety Report 9447877 (Version 2)
Quarter: 2013Q3

REPORT INFORMATION
  Report Type: Spontaneous
  Country: US (occurrence: US)
  Receive Date: 20130808
  Receipt Date: 20130812
  Transmission Date: 20140515
  Serious: No
  Sender: FDA-Public Use
  Company Number: US-009507513-1307USA017050

PATIENT
  Age: 60 Year
  Sex: Male
  Weight: 79.37 kg

DRUGS (13)
  1. PEG-INTRON [Suspect]
     Dosage: 0.5 ML, QW, REDIPEN
     Route: 058
  2. RIBAPAK [Suspect]
     Dosage: UNK UNK, QD
  3. CENTRUM SILVER [Concomitant]
     Dosage: UNK
  4. COZAAR [Concomitant]
  5. CARVEDILOL [Concomitant]
  6. LOSARTAN POTASSIUM [Concomitant]
  7. CHOLECALCIFEROL [Concomitant]
  8. OMEGA-3 [Concomitant]
  9. MAG OXIDE [Concomitant]
  10. ASPIRIN [Concomitant]
  11. ECOTRIN [Concomitant]
  12. KRILL OIL [Concomitant]
     Dosage: 300 MG-9
  13. SPIRONOLACTONE [Concomitant]

REACTIONS (2)
  - Headache [Recovering/Resolving]
  - Pain [Recovering/Resolving]
